FAERS Safety Report 18957277 (Version 1)
Quarter: 2021Q1

REPORT INFORMATION
  Report Type: Spontaneous
  Country: US (occurrence: US)
  Receive Date: 20210302
  Receipt Date: 20210302
  Transmission Date: 20210420
  Serious: Yes (Other)
  Sender: FDA-Public Use
  Company Number: US-PFIZER INC-2001080937US

PATIENT
  Age: 55 Year
  Sex: Male

DRUGS (23)
  1. WARFARIN SODIUM. [Interacting]
     Active Substance: WARFARIN SODIUM
     Dosage: 51 MG, WEEKLY
     Route: 065
     Dates: start: 19991020, end: 19991117
  2. WARFARIN SODIUM. [Interacting]
     Active Substance: WARFARIN SODIUM
     Indication: DEEP VEIN THROMBOSIS
     Dosage: 5 MG, 1X/DAY
     Dates: start: 19990530, end: 19990530
  3. VITAMIN K [PHYTOMENADIONE] [Concomitant]
     Dosage: UNK
     Route: 065
     Dates: start: 19990610, end: 19990720
  4. VITAMIN K [PHYTOMENADIONE] [Concomitant]
     Dosage: UNK
     Route: 065
     Dates: start: 19990530, end: 19990603
  5. VITAMIN E [Concomitant]
     Active Substance: .ALPHA.-TOCOPHEROL
     Dosage: 400 IU, 1X/DAY IN THE MORNING
     Route: 065
  6. WARFARIN SODIUM. [Interacting]
     Active Substance: WARFARIN SODIUM
     Dosage: 49 MG, WEEKLY
     Route: 065
     Dates: start: 19990728, end: 19991019
  7. LEVOTHYROXINE SODIUM. [Concomitant]
     Active Substance: LEVOTHYROXINE SODIUM
     Dosage: 0.1 MG, 1X/DAY IN THE MORNING
     Route: 065
  8. NEFAZODONE HYDROCHLORIDE. [Concomitant]
     Active Substance: NEFAZODONE HYDROCHLORIDE
     Dosage: 200 MG, 2X/DAY
     Route: 065
  9. CELEBREX [Interacting]
     Active Substance: CELECOXIB
     Dosage: 100 MG, AS NEEDED
     Route: 065
     Dates: start: 19990804, end: 19990922
  10. VITAMIN K [PHYTOMENADIONE] [Concomitant]
     Dosage: UNK
     Route: 065
     Dates: start: 19990721, end: 19991117
  11. RANITIDINE HYDROCHLORIDE. [Concomitant]
     Active Substance: RANITIDINE HYDROCHLORIDE
     Dosage: 150 MG, 2X/DAY
     Route: 065
  12. CALCIUM [Concomitant]
     Active Substance: CALCIUM
     Dosage: 250 MG, 1X/DAY
     Route: 065
  13. COLECALCIFEROL [Concomitant]
     Active Substance: CHOLECALCIFEROL
     Dosage: 400 IU, 1X/DAY
  14. COLECALCIFEROL [Concomitant]
     Active Substance: CHOLECALCIFEROL
     Dosage: UNK
  15. CYCLOBENZAPRINE HCL [Concomitant]
     Active Substance: CYCLOBENZAPRINE HYDROCHLORIDE
     Dosage: 10 MG, 3X/DAY
     Route: 065
  16. WARFARIN SODIUM. [Interacting]
     Active Substance: WARFARIN SODIUM
     Dosage: 7.5 MG, 1X/DAY
     Route: 065
     Dates: start: 19990531, end: 19990727
  17. COLECALCIFEROL [Concomitant]
     Active Substance: CHOLECALCIFEROL
     Dosage: UNK
     Route: 065
  18. COLECALCIFEROL [Concomitant]
     Active Substance: CHOLECALCIFEROL
     Dosage: UNK
     Dates: start: 19990607, end: 19990721
  19. VITAMIN K [PHYTOMENADIONE] [Concomitant]
     Dosage: UNK
     Route: 065
     Dates: start: 19990607, end: 19990609
  20. CELEBREX [Suspect]
     Active Substance: CELECOXIB
     Dosage: 100 MG, 1X/DAY
     Route: 065
     Dates: start: 19990707, end: 20010803
  21. COLECALCIFEROL [Concomitant]
     Active Substance: CHOLECALCIFEROL
     Dosage: UNK
     Dates: start: 19990607, end: 19990721
  22. HYDROXYZINE HCL [Concomitant]
     Active Substance: HYDROXYZINE HYDROCHLORIDE
     Dosage: 50 MG, 1X/DAY AT BEDTIME
     Route: 065
  23. VITAMIN K [PHYTOMENADIONE] [Concomitant]
     Dosage: UNK
     Route: 065
     Dates: start: 19990604, end: 19990606

REACTIONS (3)
  - Drug interaction [Unknown]
  - Haematuria [Unknown]
  - International normalised ratio increased [Unknown]
